FAERS Safety Report 9154538 (Version 1)
Quarter: 2013Q1

REPORT INFORMATION
  Report Type: Spontaneous
  Country: US (occurrence: None)
  Receive Date: 20130215
  Receipt Date: 20130215
  Transmission Date: 20140127
  Serious: Yes (Hospitalization, Other)
  Sender: FDA-Public Use
  Company Number: ADR-2012-00349

PATIENT
  Sex: Female

DRUGS (1)
  1. LIORESAL [Suspect]
     Indication: MUSCLE SPASTICITY

REACTIONS (7)
  - Device power source issue [None]
  - Drug withdrawal syndrome [None]
  - Muscle spasticity [None]
  - Abasia [None]
  - Headache [None]
  - Muscle spasms [None]
  - Alcohol withdrawal syndrome [None]
